FAERS Safety Report 5269902-0 (Version None)
Quarter: 2007Q1

REPORT INFORMATION
  Report Type: 
  Country: None (occurrence: None)
  Receive Date: 20070314
  Receipt Date: 20070306
  Transmission Date: 20070707
  Serious: Yes (Hospitalization)
  Sender: FDA-Public Use
  Company Number: 2007-155499-NL

PATIENT
  Age: 4 Month
  Sex: Male

DRUGS (7)
  1. VECURONIUM BROMIDE [Suspect]
     Indication: MUSCLE RELAXANT THERAPY
     Dosage: 0.5 MG BID
     Dates: start: 20070221, end: 20070221
  2. SPIRONOLACTONE [Concomitant]
  3. FUROSEMIDE [Concomitant]
  4. MENATETRENONE [Concomitant]
  5. FAMOTIDINE [Concomitant]
  6. INCREMIN [Concomitant]
  7. CLARITHROMYCIN [Concomitant]

REACTIONS (1)
  - RHABDOMYOLYSIS [None]
